FAERS Safety Report 8421910-4 (Version None)
Quarter: 2012Q2

REPORT INFORMATION
  Report Type: 
  Country: None (occurrence: None)
  Receive Date: 20120608
  Receipt Date: 20120530
  Transmission Date: 20120825
  Serious: Yes (Other)
  Sender: FDA-Public Use
  Company Number: MX-ELI_LILLY_AND_COMPANY-MX201205003523

PATIENT
  Age: 77 Year
  Sex: Female
  Weight: 62 kg

DRUGS (6)
  1. ZOLEDRONOC ACID [Concomitant]
  2. CARBAMAZEPINE [Concomitant]
  3. FORTEO [Suspect]
     Indication: OSTEOPOROSIS
     Dosage: UNK, QD
     Route: 058
  4. RALOXIFENE HYDROCHLORIDE [Suspect]
     Indication: OSTEOPOROSIS
  5. PINAVERIUM [Concomitant]
  6. ATACAND [Concomitant]

REACTIONS (6)
  - DRUG INEFFECTIVE [None]
  - FIBULA FRACTURE [None]
  - UPPER LIMB FRACTURE [None]
  - HIP FRACTURE [None]
  - TIBIA FRACTURE [None]
  - LOWER LIMB FRACTURE [None]
